FAERS Safety Report 6853245-5 (Version None)
Quarter: 2010Q3

REPORT INFORMATION
  Report Type: 
  Country: None (occurrence: None)
  Receive Date: 20100717
  Receipt Date: 20071203
  Transmission Date: 20110219
  Serious: No
  Sender: FDA-Public Use
  Company Number: US-PFIZER INC-2007103379

PATIENT
  Sex: Female
  Weight: 90.454 kg

DRUGS (3)
  1. CHANTIX [Suspect]
     Indication: SMOKING CESSATION THERAPY
     Dates: start: 20070801, end: 20071202
  2. METFORMIN HCL [Concomitant]
  3. MELOXICAM [Concomitant]
     Indication: ARTHRITIS

REACTIONS (5)
  - CHILLS [None]
  - DIARRHOEA [None]
  - FLATULENCE [None]
  - PYREXIA [None]
  - VIRAL INFECTION [None]
